FAERS Safety Report 11053558 (Version 1)
Quarter: 2015Q2

REPORT INFORMATION
  Report Type: Spontaneous
  Country: GB (occurrence: GB)
  Receive Date: 20150421
  Receipt Date: 20150421
  Transmission Date: 20150821
  Serious: Yes (Disabling, Other)
  Sender: FDA-Public Use
  Company Number: PHHY2015GB043849

PATIENT
  Age: 47 Year
  Sex: Female
  Weight: 69.85 kg

DRUGS (1)
  1. OMEPRAZOLE. [Suspect]
     Active Substance: OMEPRAZOLE
     Indication: GASTROOESOPHAGEAL REFLUX DISEASE
     Dosage: 20 MG, QD
     Route: 048
     Dates: start: 20150130, end: 20150228

REACTIONS (10)
  - Vomiting [Recovered/Resolved]
  - Suicidal ideation [Recovered/Resolved]
  - Fear [Recovered/Resolved]
  - Abnormal behaviour [Recovered/Resolved]
  - Anxiety [Recovered/Resolved]
  - Crying [Recovered/Resolved]
  - Confusional state [Recovered/Resolved]
  - Mental impairment [Recovered/Resolved]
  - Panic attack [Recovered/Resolved]
  - Depression [Recovered/Resolved]

NARRATIVE: CASE EVENT DATE: 201502
